FAERS Safety Report 10572882 (Version 2)
Quarter: 2014Q4

REPORT INFORMATION
  Report Type: Spontaneous
  Country: CA (occurrence: CA)
  Receive Date: 20141110
  Receipt Date: 20141219
  Transmission Date: 20150529
  Serious: Yes (Other)
  Sender: FDA-Public Use
  Company Number: CA-SA-2014SA150594

PATIENT
  Age: 45 Year
  Sex: Female

DRUGS (6)
  1. CETIRIZINE HYDROCHLORIDE. [Concomitant]
     Active Substance: CETIRIZINE HYDROCHLORIDE
     Indication: PREMEDICATION
     Route: 042
  2. FABRAZYME [Suspect]
     Active Substance: AGALSIDASE BETA
     Indication: FABRY^S DISEASE
     Route: 041
     Dates: start: 201206
  3. ACETAMINOPHEN. [Concomitant]
     Active Substance: ACETAMINOPHEN
  4. FABRAZYME [Suspect]
     Active Substance: AGALSIDASE BETA
     Indication: FABRY^S DISEASE
     Route: 041
     Dates: start: 201206
  5. FABRAZYME [Suspect]
     Active Substance: AGALSIDASE BETA
     Indication: FABRY^S DISEASE
     Route: 041
     Dates: start: 201206
  6. TYLENOL [Concomitant]
     Active Substance: ACETAMINOPHEN
     Indication: PREMEDICATION

REACTIONS (9)
  - Dizziness [Recovered/Resolved]
  - Eye pain [Recovered/Resolved]
  - Feeling abnormal [Not Recovered/Not Resolved]
  - Fatigue [Recovered/Resolved]
  - Loss of consciousness [Recovered/Resolved]
  - Pain in extremity [Recovered/Resolved]
  - Palpitations [Recovered/Resolved]
  - Eye swelling [Recovering/Resolving]
  - Tremor [Recovered/Resolved]

NARRATIVE: CASE EVENT DATE: 201410
